FAERS Safety Report 20033288 (Version 1)
Quarter: 2021Q4

REPORT INFORMATION
  Report Type: Spontaneous
  Country: US (occurrence: US)
  Receive Date: 20211104
  Receipt Date: 20211104
  Transmission Date: 20220303
  Serious: Yes (Death, Life-Threatening, Other)
  Sender: FDA-Public Use
  Company Number: US-AMGEN-USASP2021172279

PATIENT

DRUGS (3)
  1. FILGRASTIM [Suspect]
     Active Substance: FILGRASTIM
     Indication: Haematopoietic stem cell mobilisation
     Dosage: 10 MICROGRAM/KILOGRAM, QD (DAYS 1-5)
     Route: 058
  2. CARBOPLATIN [Suspect]
     Active Substance: CARBOPLATIN
     Indication: Non-small cell lung cancer
     Dosage: UNK (DAYS 11 AD 32 FOR 2 CYCLES)
     Route: 042
  3. PACLITAXEL [Suspect]
     Active Substance: PACLITAXEL
     Indication: Non-small cell lung cancer
     Dosage: 250 MILLIGRAM/SQ. METER (OVER 3 HR, DAYS 11 AND 32))
     Route: 042

REACTIONS (29)
  - Death [Fatal]
  - Myelosuppression [Unknown]
  - Leukopenia [Unknown]
  - Granulocytopenia [Unknown]
  - Bandaemia [Unknown]
  - Lymphopenia [Unknown]
  - Thrombocytopenia [Unknown]
  - Nausea [Unknown]
  - Haemorrhage [Unknown]
  - Infection [Unknown]
  - Oesophagitis [Unknown]
  - Blood creatinine abnormal [Unknown]
  - Pulmonary oedema [Unknown]
  - Lung disorder [Unknown]
  - Arrhythmia [Unknown]
  - Hypotension [Unknown]
  - Phlebitis [Unknown]
  - Thrombosis [Unknown]
  - Hyperglycaemia [Unknown]
  - Toxicity to various agents [Unknown]
  - Non-small cell lung cancer recurrent [Unknown]
  - Acute respiratory distress syndrome [Unknown]
  - Anaemia [Unknown]
  - Vomiting [Unknown]
  - Diarrhoea [Unknown]
  - Pain [Unknown]
  - Fatigue [Unknown]
  - Malaise [Unknown]
  - Therapy partial responder [Unknown]
